FAERS Safety Report 10274377 (Version 3)
Quarter: 2015Q2

REPORT INFORMATION
  Report Type: Spontaneous
  Country: ES (occurrence: ES)
  Receive Date: 20140702
  Receipt Date: 20150529
  Transmission Date: 20150821
  Serious: Yes (Other)
  Sender: FDA-Public Use
  Company Number: ES-ELI_LILLY_AND_COMPANY-ES201406009411

PATIENT
  Age: 13 Year
  Sex: Female

DRUGS (1)
  1. HUMATROPE [Suspect]
     Active Substance: SOMATROPIN
     Indication: BODY HEIGHT BELOW NORMAL
     Dosage: 1.7 MG, QD
     Route: 042
     Dates: start: 20101223, end: 20140312

REACTIONS (3)
  - Hydrocephalus [Unknown]
  - Aqueductal stenosis [Unknown]
  - Intracranial pressure increased [Unknown]
